FAERS Safety Report 19432776 (Version 2)
Quarter: 2021Q2

REPORT INFORMATION
  Report Type: Spontaneous
  Country: US (occurrence: US)
  Receive Date: 20210618
  Receipt Date: 20210624
  Transmission Date: 20210717
  Serious: No
  Sender: FDA-Public Use
  Company Number: US-SA-2021SA200319

PATIENT
  Age: 14 Year
  Sex: Female

DRUGS (1)
  1. DUPIXENT [Suspect]
     Active Substance: DUPILUMAB
     Indication: DERMATITIS ATOPIC
     Dosage: 600 MG, 1X
     Route: 058
     Dates: start: 20210421, end: 20210421

REACTIONS (4)
  - Memory impairment [Unknown]
  - Product dose omission in error [Unknown]
  - Injection site rash [Unknown]
  - Injection site pain [Unknown]

NARRATIVE: CASE EVENT DATE: 2021
